FAERS Safety Report 17210207 (Version 13)
Quarter: 2020Q2

REPORT INFORMATION
  Report Type: Spontaneous
  Country: US (occurrence: US)
  Receive Date: 20191227
  Receipt Date: 20200608
  Transmission Date: 20200713
  Serious: No
  Sender: FDA-Public Use
  Company Number: US-ACTELION-A-NJ2019-199864

PATIENT
  Sex: Female
  Weight: 61.22 kg

DRUGS (4)
  1. UPTRAVI [Suspect]
     Active Substance: SELEXIPAG
     Indication: PULMONARY ARTERIAL HYPERTENSION
     Dosage: 600 MCG, BID
     Route: 048
  2. AMBRISENTAN [Concomitant]
     Active Substance: AMBRISENTAN
  3. OPSUMIT [Suspect]
     Active Substance: MACITENTAN
     Indication: PULMONARY ARTERIAL HYPERTENSION
     Dosage: 10 MG, QD
     Route: 048
  4. ADCIRCA [Concomitant]
     Active Substance: TADALAFIL

REACTIONS (12)
  - Dyspnoea exertional [Recovered/Resolved]
  - Migraine [Unknown]
  - Nausea [Unknown]
  - Headache [Unknown]
  - Vomiting [Unknown]
  - Palpitations [Not Recovered/Not Resolved]
  - Dyspnoea [Unknown]
  - Arthralgia [Unknown]
  - Pain [Unknown]
  - Chest pain [Recovered/Resolved]
  - Myalgia [Unknown]
  - Influenza [Unknown]
